FAERS Safety Report 6260763-X (Version None)
Quarter: 2009Q3

REPORT INFORMATION
  Report Type: 
  Country: None (occurrence: None)
  Receive Date: 20090708
  Receipt Date: 20090701
  Transmission Date: 20100115
  Serious: Yes (Hospitalization, Other)
  Sender: FDA-Public Use
  Company Number: US-AMGEN-QUU347754

PATIENT
  Sex: Female
  Weight: 77.2 kg

DRUGS (17)
  1. ENBREL [Suspect]
     Indication: PSORIATIC ARTHROPATHY
     Route: 058
     Dates: start: 20051228
  2. ENBREL [Suspect]
     Indication: PSORIASIS
  3. SYNTHROID [Concomitant]
     Dates: start: 19990101
  4. ZOCOR [Concomitant]
     Dates: start: 19990101
  5. NEXIUM [Concomitant]
     Dates: start: 19950101
  6. TAMOXIFEN CITRATE [Concomitant]
     Dates: start: 20080401
  7. ENZYMES [Concomitant]
  8. CALCIUM WITH VITAMIN D [Concomitant]
  9. MULTI-VITAMINS [Concomitant]
  10. BENADRYL [Concomitant]
  11. FOSAMAX [Concomitant]
  12. FISH OIL [Concomitant]
  13. FLAX SEED OIL [Concomitant]
  14. COENZYME Q10 [Concomitant]
  15. CHROMIUM [Concomitant]
  16. BIOTIN [Concomitant]
  17. UNSPECIFIED MEDICATION [Concomitant]

REACTIONS (2)
  - BREAST CANCER IN SITU [None]
  - BREAST MASS [None]
